FAERS Safety Report 17383655 (Version 1)
Quarter: 2020Q1

REPORT INFORMATION
  Report Type: Spontaneous
  Country: US (occurrence: US)
  Receive Date: 20200206
  Receipt Date: 20200206
  Transmission Date: 20200409
  Serious: No
  Sender: FDA-Public Use
  Company Number: US-ABBVIE-19K-163-2843379-00

PATIENT
  Age: 53 Year
  Sex: Female
  Weight: 63.56 kg

DRUGS (2)
  1. FOLATE [Concomitant]
     Active Substance: FOLATE SODIUM
     Indication: PRODUCT USED FOR UNKNOWN INDICATION
  2. HUMIRA [Suspect]
     Active Substance: ADALIMUMAB
     Indication: RHEUMATOID ARTHRITIS
     Route: 058
     Dates: start: 20190629

REACTIONS (6)
  - Bone pain [Recovered/Resolved]
  - Rheumatoid arthritis [Recovered/Resolved]
  - Malaise [Recovered/Resolved]
  - Wrong technique in product usage process [Recovered/Resolved]
  - Feeling abnormal [Recovered/Resolved]
  - Influenza like illness [Recovered/Resolved]

NARRATIVE: CASE EVENT DATE: 20190629
